FAERS Safety Report 10395671 (Version 1)
Quarter: 2014Q3

REPORT INFORMATION
  Report Type: Spontaneous
  Country: US (occurrence: US)
  Receive Date: 20140820
  Receipt Date: 20140820
  Transmission Date: 20150326
  Serious: No
  Sender: FDA-Public Use
  Company Number: US-TEVA-497744USA

PATIENT

DRUGS (1)
  1. COPAXONE [Suspect]
     Active Substance: GLATIRAMER ACETATE
     Indication: MULTIPLE SCLEROSIS
     Dates: start: 201406

REACTIONS (3)
  - Injection site pain [Unknown]
  - Injection site nodule [Unknown]
  - Injection site urticaria [Unknown]

NARRATIVE: CASE EVENT DATE: 201406
